FAERS Safety Report 12674036 (Version 2)
Quarter: 2016Q3

REPORT INFORMATION
  Report Type: Other
  Country: CH (occurrence: CH)
  Receive Date: 20160822
  Receipt Date: 20160923
  Transmission Date: 20161109
  Serious: Yes (Hospitalization, Other)
  Sender: FDA-Public Use
  Company Number: CH-ASTELLAS-2016US032148

PATIENT
  Age: 21 Year
  Sex: Female

DRUGS (5)
  1. ADVAGRAF [Suspect]
     Active Substance: TACROLIMUS
     Indication: LIVER TRANSPLANT
     Dosage: 1 MG(2-0-0-0), UNKNOWN FREQ.
     Route: 048
  2. ALDACTONE [Concomitant]
     Active Substance: SPIRONOLACTONE
     Indication: PRODUCT USED FOR UNKNOWN INDICATION
     Dosage: 100 MG (1-0-0-0), UNKNOWN FREQ.
     Route: 048
  3. CELLCEPT [Suspect]
     Active Substance: MYCOPHENOLATE MOFETIL\MYCOPHENOLATE MOFETIL HYDROCHLORIDE
     Indication: LIVER TRANSPLANT
     Dosage: 500 MG, (1-0-0-1) UNKNOWN FREQ.
     Route: 048
  4. DUPHALAC [Concomitant]
     Active Substance: LACTULOSE
     Indication: PRODUCT USED FOR UNKNOWN INDICATION
     Dosage: UNK (20-0-20-0), UNKNOWN FREQ.
     Route: 048
  5. MALTOFER                           /00023548/ [Concomitant]
     Indication: PRODUCT USED FOR UNKNOWN INDICATION
     Dosage: UNK (100-0-100-0 MG), UNKNOWN FREQ.
     Route: 048

REACTIONS (2)
  - Haemoptysis [Recovered/Resolved]
  - Varices oesophageal [Unknown]

NARRATIVE: CASE EVENT DATE: 201507
